FAERS Safety Report 16761512 (Version 2)
Quarter: 2019Q3

REPORT INFORMATION
  Report Type: Report from Study
  Country: CO (occurrence: CO)
  Receive Date: 20190830
  Receipt Date: 20190916
  Transmission Date: 20191005
  Serious: Yes (Hospitalization)
  Sender: FDA-Public Use
  Company Number: CO-JNJFOC-20190830048

PATIENT
  Sex: Male
  Weight: 82 kg

DRUGS (1)
  1. STELARA [Suspect]
     Active Substance: USTEKINUMAB
     Indication: PSORIASIS
     Route: 058
     Dates: start: 20140115

REACTIONS (9)
  - Hypertension [Recovering/Resolving]
  - Venous thrombosis [Recovering/Resolving]
  - Drug ineffective [Unknown]
  - Accident [Recovering/Resolving]
  - Weight decreased [Unknown]
  - Rib fracture [Recovering/Resolving]
  - Psoriasis [Recovering/Resolving]
  - Gastritis [Recovering/Resolving]
  - Transaminases abnormal [Recovering/Resolving]

NARRATIVE: CASE EVENT DATE: 2017
